FAERS Safety Report 11911569 (Version 5)
Quarter: 2016Q2

REPORT INFORMATION
  Report Type: Report from Study
  Country: US (occurrence: US)
  Receive Date: 20160112
  Receipt Date: 20160411
  Transmission Date: 20160815
  Serious: Yes (Death, Hospitalization, Other)
  Sender: FDA-Public Use
  Company Number: US-GILEAD-2016-0192274

PATIENT
  Age: 40 Year
  Sex: Male

DRUGS (7)
  1. VALSARTAN. [Concomitant]
     Active Substance: VALSARTAN
  2. KLOR-CON [Concomitant]
     Active Substance: POTASSIUM CHLORIDE
  3. LEVEMIR [Concomitant]
     Active Substance: INSULIN DETEMIR
  4. ALIMTA [Concomitant]
     Active Substance: PEMETREXED DISODIUM
  5. AMBRISENTAN [Suspect]
     Active Substance: AMBRISENTAN
     Indication: PULMONARY HYPERTENSION
     Dosage: 10 MG, QD
     Route: 065
     Dates: start: 20151217, end: 20151223
  6. GLIPIZIDE. [Concomitant]
     Active Substance: GLIPIZIDE
  7. REVATIO [Suspect]
     Active Substance: SILDENAFIL CITRATE
     Indication: PRODUCT USED FOR UNKNOWN INDICATION
     Route: 065

REACTIONS (8)
  - Oedema peripheral [Fatal]
  - Cardiac failure [Fatal]
  - Fluid overload [Unknown]
  - Atrial fibrillation [Unknown]
  - Acute kidney injury [Unknown]
  - Cardio-respiratory arrest [Fatal]
  - Pancytopenia [Unknown]
  - Hypotension [Unknown]

NARRATIVE: CASE EVENT DATE: 20151223
